FAERS Safety Report 23698419 (Version 1)
Quarter: 2024Q2

REPORT INFORMATION
  Report Type: Spontaneous
  Country: US (occurrence: US)
  Receive Date: 20240402
  Receipt Date: 20240402
  Transmission Date: 20240716
  Serious: Yes (Other)
  Sender: FDA-Public Use
  Company Number: US-PFIZER INC-202400074970

PATIENT
  Age: 54 Year
  Sex: Female

DRUGS (7)
  1. XELJANZ XR [Suspect]
     Active Substance: TOFACITINIB CITRATE
     Dosage: 11 MG, DAILY
     Route: 048
  2. PREDNISONE [Concomitant]
     Active Substance: PREDNISONE
  3. AMOXICILLIN [Concomitant]
     Active Substance: AMOXICILLIN
  4. LISINOPRIL [Concomitant]
     Active Substance: LISINOPRIL
  5. ADVIL [Concomitant]
     Active Substance: IBUPROFEN
  6. CURCUMIN [Concomitant]
     Active Substance: CURCUMIN
  7. HERBALS\TURMERIC [Concomitant]
     Active Substance: HERBALS\TURMERIC

REACTIONS (2)
  - Tooth infection [Unknown]
  - Drug ineffective [Not Recovered/Not Resolved]

NARRATIVE: CASE EVENT DATE: 20240301
